FAERS Safety Report 5448387-5 (Version None)
Quarter: 2007Q3

REPORT INFORMATION
  Report Type: 
  Country: None (occurrence: None)
  Receive Date: 20070911
  Receipt Date: 20070905
  Transmission Date: 20080115
  Serious: Yes (Other)
  Sender: FDA-Public Use
  Company Number: US-ELI_LILLY_AND_COMPANY-US200706002861

PATIENT
  Age: 37 Year
  Sex: Female
  Weight: 111.11 kg

DRUGS (6)
  1. ZYPREXA [Suspect]
     Indication: BIPOLAR DISORDER
     Dosage: 10 MG, EACH EVENING
     Route: 048
     Dates: start: 20030101, end: 20070620
  2. ZYPREXA [Suspect]
     Dosage: 7.5 MG, EACH EVENING
     Route: 048
     Dates: start: 20070621
  3. ADDERALL [Concomitant]
     Indication: ATTENTION DEFICIT/HYPERACTIVITY DISORDER
     Dosage: 40 MG, UNK
     Route: 048
     Dates: start: 20030101
  4. CLOZARIL [Concomitant]
     Dosage: UNK, UNK
     Route: 048
     Dates: start: 19900101
  5. DEPAKOTE [Concomitant]
     Route: 048
  6. KLOR-CON [Concomitant]
     Indication: BLOOD POTASSIUM ABNORMAL
     Dosage: UNK, UNK
     Route: 048

REACTIONS (12)
  - ASTHMA [None]
  - BLOOD CHOLESTEROL ABNORMAL [None]
  - GASTROOESOPHAGEAL REFLUX DISEASE [None]
  - GLYCOSURIA [None]
  - HEPATITIS VIRAL [None]
  - HYPERPHAGIA [None]
  - HYPERTENSION [None]
  - IMPAIRED HEALING [None]
  - POOR PERIPHERAL CIRCULATION [None]
  - SLEEP APNOEA SYNDROME [None]
  - TYPE 2 DIABETES MELLITUS [None]
  - WEIGHT INCREASED [None]
